FAERS Safety Report 5231623-8 (Version None)
Quarter: 2007Q1

REPORT INFORMATION
  Report Type: 
  Country: None (occurrence: None)
  Receive Date: 20070206
  Receipt Date: 20070126
  Transmission Date: 20070707
  Serious: Yes (Hospitalization)
  Sender: FDA-Public Use
  Company Number: DE-KINGPHARMUSA00001-K200601612

PATIENT

DRUGS (4)
  1. ALTACE [Suspect]
     Route: 048
     Dates: start: 20030201, end: 20061103
  2. ALKA-SELTZER PM [Suspect]
     Indication: ANALGESIC EFFECT
     Dosage: 650 MG, QD
     Route: 048
     Dates: start: 20030101
  3. ALKA-SELTZER PM [Suspect]
     Indication: INSOMNIA
  4. LIPITOR [Concomitant]
     Route: 048
     Dates: start: 20030201, end: 20061103

REACTIONS (12)
  - ANGIOEDEMA [None]
  - BLOOD PRESSURE INCREASED [None]
  - BRONCHITIS [None]
  - COUGH [None]
  - DYSPHAGIA [None]
  - DYSPNOEA [None]
  - HEART RATE INCREASED [None]
  - PHARYNGEAL OEDEMA [None]
  - PHARYNGITIS [None]
  - RESPIRATORY RATE INCREASED [None]
  - WHEEZING [None]
  - WHITE BLOOD CELL COUNT INCREASED [None]
